FAERS Safety Report 18525186 (Version 5)
Quarter: 2022Q4

REPORT INFORMATION
  Report Type: Spontaneous
  Country: GB (occurrence: GB)
  Receive Date: 20201119
  Receipt Date: 20221221
  Transmission Date: 20230113
  Serious: Yes (Other)
  Sender: FDA-Public Use
  Company Number: GB-MYLANLABS-2020M1092882

PATIENT
  Sex: Male

DRUGS (4)
  1. FLUOXETINE [Interacting]
     Active Substance: FLUOXETINE HYDROCHLORIDE
     Indication: Product used for unknown indication
     Dosage: UNK UNK, UNKNOWN
     Route: 065
  2. CLOZARIL [Interacting]
     Active Substance: CLOZAPINE
     Indication: Schizophrenia
     Dosage: UNK UNK, UNKNOWN
     Route: 048
     Dates: start: 20010710
  3. CLOZARIL [Interacting]
     Active Substance: CLOZAPINE
     Dosage: 50 MG, DAILY IN AM
     Route: 048
     Dates: start: 2020
  4. CREON [Concomitant]
     Active Substance: PANCRELIPASE AMYLASE\PANCRELIPASE LIPASE\PANCRELIPASE PROTEASE
     Indication: Product used for unknown indication
     Dosage: 2 DOSAGE FORM, WITH EACH MEAL

REACTIONS (2)
  - Labelled drug-drug interaction medication error [Unknown]
  - Antipsychotic drug level decreased [Recovering/Resolving]

NARRATIVE: CASE EVENT DATE: 20200101
